FAERS Safety Report 20841263 (Version 6)
Quarter: 2024Q2

REPORT INFORMATION
  Report Type: Report from Study
  Country: DE (occurrence: DE)
  Receive Date: 20220517
  Receipt Date: 20240610
  Transmission Date: 20240715
  Serious: Yes (Hospitalization, Other)
  Sender: FDA-Public Use
  Company Number: DE-JNJFOC-20210635266

PATIENT
  Age: 5 Decade
  Sex: Female

DRUGS (9)
  1. SIMPONI [Suspect]
     Active Substance: GOLIMUMAB
     Indication: Axial spondyloarthritis
     Route: 058
     Dates: start: 20201030, end: 20210831
  2. SIMPONI [Suspect]
     Active Substance: GOLIMUMAB
     Route: 058
     Dates: start: 20211005
  3. SIMPONI [Suspect]
     Active Substance: GOLIMUMAB
     Route: 058
     Dates: start: 20200904
  4. SIMPONI [Suspect]
     Active Substance: GOLIMUMAB
     Route: 058
     Dates: start: 20200619, end: 20200807
  5. SIMPONI [Suspect]
     Active Substance: GOLIMUMAB
     Route: 058
     Dates: start: 20220415
  6. CELECOXIB [Concomitant]
     Active Substance: CELECOXIB
     Dates: start: 20200410
  7. COSENTYX [Concomitant]
     Active Substance: SECUKINUMAB
     Dates: start: 20191017, end: 20200210
  8. COSENTYX [Concomitant]
     Active Substance: SECUKINUMAB
     Dates: start: 20191024, end: 20200412
  9. CIMZIA [Concomitant]
     Active Substance: CERTOLIZUMAB PEGOL
     Dates: start: 20200514, end: 20200528

REACTIONS (12)
  - Obesity [Not Recovered/Not Resolved]
  - Reflux gastritis [Unknown]
  - Hiatus hernia [Unknown]
  - Dysaesthesia [Recovered/Resolved]
  - Abdominal fat apron [Recovered/Resolved]
  - Diaphragmatic hernia [Recovered/Resolved]
  - Iritis [Unknown]
  - Urinary tract infection [Unknown]
  - Off label use [Unknown]
  - Inappropriate schedule of product administration [Unknown]
  - Psoriasis [Unknown]
  - COVID-19 [Unknown]

NARRATIVE: CASE EVENT DATE: 20200904
